FAERS Safety Report 8332156-2 (Version None)
Quarter: 2012Q2

REPORT INFORMATION
  Report Type: 
  Country: None (occurrence: None)
  Receive Date: 20120503
  Receipt Date: 20120420
  Transmission Date: 20120825
  Serious: Yes (Hospitalization, Other)
  Sender: FDA-Public Use
  Company Number: NL-AMGEN-NLDSP2011047767

PATIENT
  Age: 38 Year
  Sex: Male
  Weight: 126 kg

DRUGS (2)
  1. ENBREL [Suspect]
     Indication: PSORIATIC ARTHROPATHY
     Dosage: 50 MG, WEEKLY
  2. LISINOPRIL [Concomitant]
     Dosage: 10 MG, 1X/DAY
     Dates: start: 20110815

REACTIONS (4)
  - ERYSIPELAS [None]
  - STREPTOCOCCAL INFECTION [None]
  - LYMPHADENITIS [None]
  - ABSCESS [None]
